FAERS Safety Report 6629838-7 (Version None)
Quarter: 2010Q1

REPORT INFORMATION
  Report Type: 
  Country: None (occurrence: None)
  Receive Date: 20100311
  Receipt Date: 20090706
  Transmission Date: 20100710
  Serious: No
  Sender: FDA-Public Use
  Company Number: US-BIOGENIDEC-2009BI020501

PATIENT
  Sex: Female

DRUGS (3)
  1. AVONEX [Suspect]
     Indication: MULTIPLE SCLEROSIS
     Route: 030
     Dates: start: 20000101
  2. AVONEX [Suspect]
     Route: 030
  3. AVONEX [Suspect]
     Route: 030

REACTIONS (7)
  - ASTHENOPIA [None]
  - DEPRESSION [None]
  - FATIGUE [None]
  - NARCOLEPSY [None]
  - PYREXIA [None]
  - TREMOR [None]
  - VISUAL IMPAIRMENT [None]
